FAERS Safety Report 23286870 (Version 2)
Quarter: 2023Q4

REPORT INFORMATION
  Report Type: Report from Study
  Country: US (occurrence: US)
  Receive Date: 20231212
  Receipt Date: 20231222
  Transmission Date: 20240110
  Serious: Yes (Other)
  Sender: FDA-Public Use
  Company Number: US-ACADIA PHARMACEUTICALS INC.-ACA-2023-PIM-005613

PATIENT
  Sex: Male

DRUGS (3)
  1. NUPLAZID [Suspect]
     Active Substance: PIMAVANSERIN TARTRATE
     Indication: Parkinson^s disease psychosis
     Dosage: 34 MILLIGRAM, QD
     Route: 048
     Dates: start: 202310, end: 20231207
  2. SEROQUEL [Suspect]
     Active Substance: QUETIAPINE FUMARATE
  3. DONEPEZIL [Suspect]
     Active Substance: DONEPEZIL

REACTIONS (2)
  - Electrocardiogram QT prolonged [Unknown]
  - Drug interaction [Recovered/Resolved]
